FAERS Safety Report 19266814 (Version 1)
Quarter: 2021Q2

REPORT INFORMATION
  Report Type: Report from Study
  Country: DE (occurrence: DE)
  Receive Date: 20210517
  Receipt Date: 20210517
  Transmission Date: 20210717
  Serious: Yes (Death, Hospitalization, Other)
  Sender: FDA-Public Use
  Company Number: NVSC2021DE109165

PATIENT
  Sex: Female
  Weight: 78 kg

DRUGS (3)
  1. LETROZOLE. [Suspect]
     Active Substance: LETROZOLE
     Indication: BREAST CANCER METASTATIC
     Dosage: 2.5 MG, QD
     Route: 048
     Dates: start: 20181224
  2. KISQALI [Suspect]
     Active Substance: RIBOCICLIB
     Dosage: 400 MG, QD (REGIMEN 21 DAYS INTAKE, 7 DAYS PAUSE)
     Route: 048
     Dates: start: 20200611, end: 20201220
  3. KISQALI [Suspect]
     Active Substance: RIBOCICLIB
     Indication: BREAST CANCER METASTATIC
     Dosage: 400 MG, QD (REGIMEN 21 DAYS INTAKE, 7 DAYS PAUSE)
     Route: 048
     Dates: start: 20181224, end: 20200311

REACTIONS (12)
  - Pyelonephritis [Fatal]
  - Mitral valve incompetence [Unknown]
  - Diastolic dysfunction [Unknown]
  - Cardiac failure [Fatal]
  - Urinary retention [Recovered/Resolved with Sequelae]
  - Urosepsis [Fatal]
  - Acute kidney injury [Fatal]
  - Multiple organ dysfunction syndrome [Fatal]
  - Hydronephrosis [Unknown]
  - Aortic valve disease [Unknown]
  - Urinary tract obstruction [Fatal]
  - Tricuspid valve incompetence [Unknown]

NARRATIVE: CASE EVENT DATE: 20201123
